FAERS Safety Report 5402448-5 (Version None)
Quarter: 2007Q3

REPORT INFORMATION
  Report Type: 
  Country: None (occurrence: None)
  Receive Date: 20070801
  Receipt Date: 20070727
  Transmission Date: 20080115
  Serious: Yes (Hospitalization, Other)
  Sender: FDA-Public Use
  Company Number: JP-GENENTECH-245331

PATIENT
  Age: 68 Year
  Sex: Male

DRUGS (5)
  1. ACTIVASE [Suspect]
     Indication: CEREBRAL ARTERY EMBOLISM
     Dosage: 0.276 MG/KG, SINGLE
     Route: 042
     Dates: start: 20060401, end: 20060731
  2. RADICUT [Concomitant]
     Indication: DRUG USE FOR UNKNOWN INDICATION
     Dosage: 30 MG, UNK
     Dates: start: 20060401, end: 20060402
  3. ZANTAC 150 [Concomitant]
     Indication: DRUG USE FOR UNKNOWN INDICATION
     Dates: start: 20060401, end: 20060403
  4. HEPARIN [Concomitant]
     Indication: DRUG USE FOR UNKNOWN INDICATION
     Dates: start: 20060402, end: 20060412
  5. UNASYN [Concomitant]
     Indication: DRUG USE FOR UNKNOWN INDICATION
     Dates: start: 20060403, end: 20060411

REACTIONS (1)
  - RENAL INFARCT [None]
